FAERS Safety Report 4399424-0 (Version None)
Quarter: 2004Q3

REPORT INFORMATION
  Report Type: 
  Country: None (occurrence: None)
  Receive Date: 20040712
  Receipt Date: 20040624
  Transmission Date: 20050211
  Serious: Yes (Death)
  Sender: FDA-Public Use
  Company Number: 2004AP000550

PATIENT
  Age: 19 Year
  Sex: Male
  Weight: 65.7716 kg

DRUGS (1)
  1. PAROXETINE HYDROCHLORIDE [Suspect]
     Indication: ANXIETY DISORDER
     Dosage: 1 TAB; EVERY DAY (DAILY); ORAL
     Route: 048

REACTIONS (3)
  - DRUG LEVEL INCREASED [None]
  - INJURY ASPHYXIATION [None]
  - MEDICATION ERROR [None]
